FAERS Safety Report 10766793 (Version 1)
Quarter: 2015Q1

REPORT INFORMATION
  Report Type: Spontaneous
  Country: GB (occurrence: GB)
  Receive Date: 20150205
  Receipt Date: 20150205
  Transmission Date: 20150721
  Serious: Yes (Death, Other)
  Sender: FDA-Public Use
  Company Number: GB-ACTELION-A-CH2015-112407

PATIENT
  Age: 76 Year
  Sex: Female
  Weight: 50 kg

DRUGS (6)
  1. OPSUMIT [Suspect]
     Active Substance: MACITENTAN
     Indication: PULMONARY ARTERIAL HYPERTENSION
     Dosage: 10 MG, UNK
     Route: 048
     Dates: start: 20140306
  2. DIGOXIN. [Concomitant]
     Active Substance: DIGOXIN
  3. AMLODIPINE [Concomitant]
     Active Substance: AMLODIPINE BESYLATE
  4. BUMETANIDE. [Concomitant]
     Active Substance: BUMETANIDE
  5. SILDENAFIL. [Concomitant]
     Active Substance: SILDENAFIL
  6. VENTAVIS [Suspect]
     Active Substance: ILOPROST
     Indication: PULMONARY ARTERIAL HYPERTENSION
     Route: 055

REACTIONS (3)
  - Suicide attempt [Unknown]
  - Sudden cardiac death [Fatal]
  - Depressed mood [Unknown]

NARRATIVE: CASE EVENT DATE: 20140430
